FAERS Safety Report 6921595-X (Version None)
Quarter: 2010Q3

REPORT INFORMATION
  Report Type: 
  Country: None (occurrence: None)
  Receive Date: 20100805
  Receipt Date: 20100603
  Transmission Date: 20110219
  Serious: No
  Sender: FDA-Public Use
  Company Number: US-002197

PATIENT
  Sex: Male
  Weight: 76.7486 kg

DRUGS (19)
  1. DEGARELIX (240 MG, 80 MG, 80 MG, 80  MG) [Suspect]
     Indication: PROSTATE CANCER
     Dosage: SEE IMAGE
     Route: 058
     Dates: start: 20091010
  2. DEGARELIX (240 MG, 80 MG, 80 MG, 80  MG) [Suspect]
     Indication: PROSTATE CANCER
     Dosage: SEE IMAGE
     Route: 058
     Dates: start: 20091103
  3. DEGARELIX (240 MG, 80 MG, 80 MG, 80  MG) [Suspect]
     Indication: PROSTATE CANCER
     Dosage: SEE IMAGE
     Route: 058
     Dates: start: 20091207
  4. DEGARELIX (240 MG, 80 MG, 80 MG, 80  MG) [Suspect]
     Indication: PROSTATE CANCER
     Dosage: SEE IMAGE
     Route: 058
     Dates: start: 20100111
  5. DEGARELIX (240 MG, 80 MG, 80 MG, 80  MG) [Suspect]
     Indication: PROSTATE CANCER
     Dosage: SEE IMAGE
     Route: 058
     Dates: start: 20100212
  6. DEGARELIX (240 MG, 80 MG, 80 MG, 80  MG) [Suspect]
     Indication: PROSTATE CANCER
     Dosage: SEE IMAGE
     Route: 058
     Dates: start: 20100316
  7. DEGARELIX (240 MG, 80 MG, 80 MG, 80  MG) [Suspect]
     Indication: PROSTATE CANCER
     Dosage: SEE IMAGE
     Route: 058
     Dates: start: 20100421
  8. DEGARELIX (240 MG, 80 MG, 80 MG, 80  MG) [Suspect]
     Indication: PROSTATE CANCER
     Dosage: SEE IMAGE
     Route: 058
     Dates: start: 20100525
  9. ACTOPLUS MET [Concomitant]
  10. AMARYL [Concomitant]
  11. CALCIUM [Concomitant]
  12. CENTRUM SILVER /01292501/ [Concomitant]
  13. DIGOXIN [Concomitant]
  14. FENOFIBRATE [Concomitant]
  15. LASIX [Concomitant]
  16. LIPITOR [Concomitant]
  17. MEXILETINE [Concomitant]
  18. OMEGA-3 TRIGLYCERIDES [Concomitant]
  19. SOTALOL [Concomitant]

REACTIONS (3)
  - ACTIVITIES OF DAILY LIVING IMPAIRED [None]
  - ASTHENIA [None]
  - DYSPNOEA [None]
